FAERS Safety Report 6865214-X (Version None)
Quarter: 2010Q3

REPORT INFORMATION
  Report Type: 
  Country: None (occurrence: None)
  Receive Date: 20100721
  Receipt Date: 20080416
  Transmission Date: 20110219
  Serious: No
  Sender: FDA-Public Use
  Company Number: US-PFIZER INC-2008032591

PATIENT
  Sex: Female
  Weight: 81.8 kg

DRUGS (7)
  1. CHANTIX [Suspect]
     Indication: SMOKING CESSATION THERAPY
     Route: 048
     Dates: start: 20080210, end: 20080301
  2. TOPROL-XL [Concomitant]
     Indication: CARDIAC DISORDER
     Route: 048
  3. CRESTOR [Concomitant]
     Indication: CARDIAC DISORDER
     Route: 048
  4. LEVOTHYROXINE SODIUM [Concomitant]
     Indication: THYROID DISORDER
     Route: 048
  5. ATACAND [Concomitant]
     Route: 048
  6. NITROGLYCERIN [Concomitant]
     Route: 048
  7. ACETYLSALICYLIC ACID [Concomitant]
     Route: 048

REACTIONS (4)
  - DYSPNOEA [None]
  - INSOMNIA [None]
  - RASH [None]
  - SLEEP DISORDER [None]
